FAERS Safety Report 20278320 (Version 3)
Quarter: 2022Q1

REPORT INFORMATION
  Report Type: Report from Study
  Country: DE (occurrence: None)
  Receive Date: 20220103
  Receipt Date: 20220324
  Transmission Date: 20220424
  Serious: Yes (Hospitalization)
  Sender: FDA-Public Use
  Company Number: DE-ROCHE-2990893

PATIENT
  Age: 54 Year
  Sex: Male
  Weight: 99 kg

DRUGS (5)
  1. RITUXIMAB [Suspect]
     Active Substance: RITUXIMAB
     Indication: Waldenstrom^s macroglobulinaemia
     Dosage: DAY 1 CYCLE 1
     Route: 042
     Dates: start: 20210526, end: 20210526
  2. RITUXIMAB [Suspect]
     Active Substance: RITUXIMAB
     Dosage: LAST ADMINISTRATION PRIOR TO REPORTED SAE: 12-OCT-2021,?C3D1
     Route: 042
     Dates: start: 20210720
  3. RITUXIMAB [Suspect]
     Active Substance: RITUXIMAB
     Indication: Waldenstrom^s macroglobulinaemia
     Dosage: ON 12/OCT/2021, RECEIVED LAST DOSE OF SUBCUTANEOUS RITUXIMAB PRIOR TO ADVERSE EVENT, C2D1
     Route: 058
     Dates: start: 20210622, end: 20210622
  4. IBRUTINIB [Suspect]
     Active Substance: IBRUTINIB
     Indication: Waldenstrom^s macroglobulinaemia
     Dosage: ON 02/DEC/2021, RECEIVED LAST ADMINISTRATION OF IBRUTINIB PRIOR TO EVENT
     Route: 048
     Dates: start: 20210526
  5. BORTEZOMIB [Suspect]
     Active Substance: BORTEZOMIB
     Indication: Waldenstrom^s macroglobulinaemia
     Dosage: 3 TIMES PER CYCLE (DAY 1, 8, 15). ?ON 26/OCT/2021, RECEIVED LAST ADMINISTRATION OF BORTEZOMIB PRIOR
     Route: 058
     Dates: start: 20210526

REACTIONS (1)
  - COVID-19 pneumonia [Recovered/Resolved with Sequelae]

NARRATIVE: CASE EVENT DATE: 20211202
